FAERS Safety Report 8224382-8 (Version None)
Quarter: 2012Q1

REPORT INFORMATION
  Report Type: 
  Country: None (occurrence: None)
  Receive Date: 20120320
  Receipt Date: 20120320
  Transmission Date: 20120608
  Serious: No
  Sender: FDA-Public Use
  Company Number: None

PATIENT
  Age: 68 Year
  Sex: Male
  Weight: 99 kg

DRUGS (1)
  1. DOXYCYCLINE [Suspect]
     Indication: INFECTION
     Dosage: 100 MG BID PO
     Route: 048
     Dates: start: 20120223, end: 20120315

REACTIONS (3)
  - SWELLING [None]
  - DYSPNOEA [None]
  - CHEST PAIN [None]
